FAERS Safety Report 11402839 (Version 1)
Quarter: 2015Q3

REPORT INFORMATION
  Report Type: Spontaneous
  Country: US (occurrence: US)
  Receive Date: 20150821
  Receipt Date: 20150821
  Transmission Date: 20151125
  Serious: No
  Sender: FDA-Public Use
  Company Number: US-ROCHE-1195086

PATIENT
  Age: 47 Year
  Sex: Female

DRUGS (5)
  1. PEGASYS [Suspect]
     Active Substance: PEGINTERFERON ALFA-2A
     Indication: CHRONIC HEPATITIS C
     Route: 058
     Dates: start: 20130215, end: 20130815
  2. KLONOPIN [Suspect]
     Active Substance: CLONAZEPAM
     Indication: ANGER
     Route: 065
  3. PROTONIX (UNITED STATES) [Concomitant]
     Indication: HYPERCHLORHYDRIA
     Route: 065
  4. INCIVEK [Suspect]
     Active Substance: TELAPREVIR
     Indication: HEPATITIS C
     Route: 065
  5. COPEGUS [Suspect]
     Active Substance: RIBAVIRIN
     Indication: CHRONIC HEPATITIS C
     Route: 065
     Dates: start: 20130215, end: 20130815

REACTIONS (30)
  - Dyspnoea [Not Recovered/Not Resolved]
  - Viral load increased [Not Recovered/Not Resolved]
  - Feeling abnormal [Unknown]
  - Asthenia [Recovering/Resolving]
  - Anxiety [Unknown]
  - White blood cell count decreased [Unknown]
  - Palpitations [Recovered/Resolved]
  - Anger [Unknown]
  - Hepatic enzyme increased [Unknown]
  - Diarrhoea [Recovered/Resolved]
  - Proctalgia [Unknown]
  - Bruxism [Unknown]
  - Injection site bruising [Unknown]
  - Dry skin [Unknown]
  - Blood glucose decreased [Unknown]
  - Cardiac flutter [Recovered/Resolved]
  - Anal pruritus [Unknown]
  - Rash [Unknown]
  - Decreased appetite [Unknown]
  - Paranoia [Unknown]
  - Weight increased [Unknown]
  - Platelet count decreased [Recovering/Resolving]
  - Menorrhagia [Unknown]
  - Rash erythematous [Unknown]
  - Haemorrhoids [Unknown]
  - Heart rate increased [Unknown]
  - Tremor [Unknown]
  - Nausea [Unknown]
  - Dissociation [Unknown]
  - Alopecia [Recovered/Resolved]

NARRATIVE: CASE EVENT DATE: 201311
